FAERS Safety Report 9234581 (Version 2)
Quarter: 2013Q2

REPORT INFORMATION
  Report Type: Spontaneous
  Country: US (occurrence: US)
  Receive Date: 20130416
  Receipt Date: 20130501
  Transmission Date: 20140414
  Serious: No
  Sender: FDA-Public Use
  Company Number: US-PFIZER INC-2013117527

PATIENT
  Age: 78 Year
  Sex: Female
  Weight: 66.21 kg

DRUGS (5)
  1. LYRICA [Suspect]
     Indication: OPHTHALMIC HERPES ZOSTER
     Dosage: 150 MG, 3X/DAY
     Dates: start: 2007
  2. LYRICA [Suspect]
     Dosage: 150 MG, 2X/DAY
  3. ATENOLOL [Concomitant]
     Indication: HYPERTENSION
     Dosage: 50 MG, 1X/DAY
  4. LEVOTHYROXINE [Concomitant]
     Indication: THYROID DISORDER
     Dosage: 88 UG, 1X/DAY
  5. SIMVASTATIN [Concomitant]
     Indication: BLOOD CHOLESTEROL ABNORMAL
     Dosage: 10 MG, 1X/DAY

REACTIONS (4)
  - Drug dose omission [Unknown]
  - Intentional drug misuse [Unknown]
  - Neuralgia [Unknown]
  - Headache [Unknown]
